APPROVED DRUG PRODUCT: AMINOCAPROIC ACID IN PLASTIC CONTAINER
Active Ingredient: AMINOCAPROIC ACID
Strength: 250MG/ML
Dosage Form/Route: INJECTABLE;INJECTION
Application: A070010 | Product #001 | TE Code: AP
Applicant: HOSPIRA INC
Approved: Mar 9, 1987 | RLD: No | RS: Yes | Type: RX